FAERS Safety Report 17564949 (Version 5)
Quarter: 2020Q4

REPORT INFORMATION
  Report Type: Spontaneous
  Country: US (occurrence: US)
  Receive Date: 20200320
  Receipt Date: 20201111
  Transmission Date: 20210113
  Serious: No
  Sender: FDA-Public Use
  Company Number: US-SA-2020SA063914

PATIENT

DRUGS (3)
  1. DUPIXENT [Suspect]
     Active Substance: DUPILUMAB
     Dosage: 300 MG, QOW
     Route: 058
     Dates: start: 2020
  2. DUPIXENT [Suspect]
     Active Substance: DUPILUMAB
     Indication: PRODUCT USED FOR UNKNOWN INDICATION
     Dosage: 300 MG, QOW (300 MG/2ML, QOW)
     Route: 058
     Dates: start: 20200117, end: 2020
  3. DUPIXENT [Suspect]
     Active Substance: DUPILUMAB
     Dosage: 300 MG, QOW
     Route: 058
     Dates: start: 2020, end: 2020

REACTIONS (11)
  - Myalgia [Unknown]
  - Peripheral swelling [Unknown]
  - Neck pain [Recovered/Resolved]
  - Weight increased [Unknown]
  - Increased appetite [Recovered/Resolved]
  - Sinus disorder [Unknown]
  - Visual impairment [Unknown]
  - Gait disturbance [Unknown]
  - Eye pain [Unknown]
  - Ocular discomfort [Unknown]
  - Product dose omission issue [Unknown]

NARRATIVE: CASE EVENT DATE: 2020
